FAERS Safety Report 20924829 (Version 5)
Quarter: 2023Q2

REPORT INFORMATION
  Report Type: Spontaneous
  Country: US (occurrence: US)
  Receive Date: 20220607
  Receipt Date: 20230604
  Transmission Date: 20230722
  Serious: No
  Sender: FDA-Public Use
  Company Number: US-PHARMAESSENTIA CORPORATION-US-2022-PEC-000519

PATIENT

DRUGS (7)
  1. BESREMI [Suspect]
     Active Substance: ROPEGINTERFERON ALFA-2B-NJFT
     Indication: Polycythaemia vera
     Dosage: 100 MG, Q2W
     Route: 058
     Dates: start: 20220213
  2. BESREMI [Suspect]
     Active Substance: ROPEGINTERFERON ALFA-2B-NJFT
     Dosage: 150 MCG, EVERY 14 DAYS
     Route: 058
     Dates: start: 20220227
  3. BESREMI [Suspect]
     Active Substance: ROPEGINTERFERON ALFA-2B-NJFT
     Dosage: UNK
     Route: 058
     Dates: start: 20220313
  4. BESREMI [Suspect]
     Active Substance: ROPEGINTERFERON ALFA-2B-NJFT
     Dosage: 450 MCG
     Route: 058
     Dates: start: 20220606
  5. BESREMI [Suspect]
     Active Substance: ROPEGINTERFERON ALFA-2B-NJFT
     Dosage: 500 MCG, Q2W
     Route: 058
  6. BESREMI [Suspect]
     Active Substance: ROPEGINTERFERON ALFA-2B-NJFT
     Dosage: UNK
     Route: 058
  7. FLONASE [Concomitant]
     Active Substance: FLUTICASONE PROPIONATE
     Indication: Hypersensitivity
     Dosage: UNK
     Route: 065

REACTIONS (13)
  - Intermenstrual bleeding [Recovered/Resolved]
  - Oral surgery [Unknown]
  - Accidental underdose [Unknown]
  - White blood cell count increased [Unknown]
  - Drug ineffective [Unknown]
  - Injection site haematoma [Recovering/Resolving]
  - Injection site pruritus [Recovering/Resolving]
  - Injection site erythema [Recovering/Resolving]
  - Urticaria [Recovered/Resolved]
  - Injection site discolouration [Recovering/Resolving]
  - Aspartate aminotransferase increased [Unknown]
  - Increased tendency to bruise [Unknown]
  - Platelet count decreased [Unknown]

NARRATIVE: CASE EVENT DATE: 20220214
